FAERS Safety Report 4948228-6 (Version None)
Quarter: 2006Q1

REPORT INFORMATION
  Report Type: 
  Country: None (occurrence: None)
  Receive Date: 20060320
  Receipt Date: 20060303
  Transmission Date: 20060701
  Serious: Yes (Hospitalization)
  Sender: FDA-Public Use
  Company Number: US-KINGPHARMUSA00001-K200600307

PATIENT
  Age: 60 Year
  Sex: Female
  Weight: 58 kg

DRUGS (9)
  1. LEVOXYL [Suspect]
     Indication: HYPOTHYROIDISM
     Dosage: 25 MCG, QOD
     Route: 048
     Dates: start: 20060211, end: 20060303
  2. VASOTEC RPD [Concomitant]
     Indication: HYPERTENSION
     Dosage: 5 MG/2.5 MG QAM + QPM
     Route: 048
  3. LOZOL [Concomitant]
     Indication: HYPERTENSION
     Dosage: 1.25 MG, QD
     Route: 048
  4. K-DUR 10 [Concomitant]
     Indication: PROPHYLAXIS
     Dosage: 60 MEQ, QD
     Route: 048
  5. VIVELLE [Concomitant]
     Indication: MENOPAUSE
     Dosage: .025 MG, BIW
     Route: 061
  6. COQ10 [Concomitant]
     Indication: MEDICAL DIET
     Dosage: 100 MG, QD
     Route: 048
  7. FISH OIL [Concomitant]
     Indication: MEDICAL DIET
     Dosage: 1250 MG, BID
     Route: 048
  8. MAGNESIUM [Concomitant]
     Indication: MINERAL SUPPLEMENTATION
     Dosage: 400 MG, QD
     Route: 048
  9. CALCIUM GLUCONATE [Concomitant]
     Indication: MINERAL SUPPLEMENTATION
     Dosage: 1800 MG, QD
     Route: 048

REACTIONS (9)
  - ABDOMINAL DISTENSION [None]
  - ABDOMINAL PAIN UPPER [None]
  - BACK PAIN [None]
  - BLOOD THYROID STIMULATING HORMONE DECREASED [None]
  - CHEST PAIN [None]
  - FEELING JITTERY [None]
  - HOT FLUSH [None]
  - INSOMNIA [None]
  - PAIN IN JAW [None]
